FAERS Safety Report 7305505-1 (Version None)
Quarter: 2011Q1

REPORT INFORMATION
  Report Type: 
  Country: None (occurrence: None)
  Receive Date: 20110222
  Receipt Date: 20110127
  Transmission Date: 20110831
  Serious: No
  Sender: FDA-Public Use
  Company Number: US-B.I. PHARMACEUTICALS,INC./RIDGEFIELD-2010-BP-14841BP

PATIENT
  Age: 68 Year
  Sex: Male

DRUGS (6)
  1. AMIODARONE [Suspect]
     Indication: ATRIAL FIBRILLATION
  2. AMLODIPINE [Concomitant]
     Indication: ATRIAL FIBRILLATION
  3. PRADAXA [Suspect]
     Indication: ATRIAL FIBRILLATION
     Dosage: 300 MG
     Route: 048
     Dates: start: 20101101
  4. CRESTOR [Concomitant]
     Indication: BLOOD CHOLESTEROL INCREASED
  5. METOPROLOL [Concomitant]
     Indication: HYPERTENSION
  6. CARTIA XT [Suspect]
     Indication: HYPERTENSION
     Dosage: 180 MG

REACTIONS (2)
  - DIARRHOEA [None]
  - HEADACHE [None]
